FAERS Safety Report 9009396 (Version 2)
Quarter: 2013Q1

REPORT INFORMATION
  Report Type: Report from Study
  Country: US (occurrence: US)
  Receive Date: 20130111
  Receipt Date: 20130131
  Transmission Date: 20140127
  Serious: Yes (Hospitalization, Other)
  Sender: FDA-Public Use
  Company Number: US-ASTELLAS-2013US000127

PATIENT
  Age: 78 Year
  Sex: Male

DRUGS (24)
  1. COMPAZINE                          /00013302/ [Concomitant]
     Indication: VOMITING
  2. ERLOTINIB TABLET [Suspect]
     Indication: NON-SMALL CELL LUNG CANCER
     Dosage: 150 MG, UID/QD
     Route: 048
     Dates: start: 20110506, end: 20121226
  3. ERLOTINIB TABLET [Suspect]
     Dosage: 150 MG, UID/QD
     Route: 048
  4. ERLOTINIB TABLET [Suspect]
     Dosage: 150 MG, UID/QD
     Route: 048
  5. ERLOTINIB TABLET [Suspect]
     Dosage: 150 MG, UID/QD
     Route: 048
  6. DASATINIB [Suspect]
     Indication: NON-SMALL CELL LUNG CANCER
     Dosage: 20 MG, UID/QD
     Route: 048
     Dates: start: 20110506, end: 20121226
  7. DASATINIB [Suspect]
     Dosage: 20 MG, UID/QD
     Route: 048
  8. DASATINIB [Suspect]
     Dosage: 20 MG, UID/QD
     Route: 048
  9. DASATINIB [Suspect]
     Dosage: 20 MG, UID/QD
     Route: 048
  10. DASATINIB [Suspect]
     Dosage: 20 MG, UID/QD
     Route: 048
  11. DASATINIB [Suspect]
     Dosage: 50 MG, UID/QD
     Route: 048
     Dates: start: 20110506, end: 20121226
  12. DASATINIB [Suspect]
     Dosage: 50 MG, UID/QD
     Route: 048
  13. DASATINIB [Suspect]
     Dosage: 50 MG, UID/QD
     Route: 048
  14. DASATINIB [Suspect]
     Dosage: 50 MG, UID/QD
     Route: 048
  15. UROXATRAL [Concomitant]
     Indication: PROSTATIC DISORDER
     Dosage: 1 DF, QHS
     Route: 048
  16. CLEOCIN                            /00166004/ [Concomitant]
     Indication: RASH
     Dosage: 1 DF, BID
     Route: 065
  17. PEPCID                             /00706001/ [Concomitant]
     Indication: PROPHYLAXIS
     Dosage: 20 MG, UID/QD
     Route: 048
  18. LASIX                              /00032601/ [Concomitant]
     Indication: FLUID OVERLOAD
     Dosage: 1 DF, BID
     Route: 048
  19. HYCODAN                            /00060002/ [Concomitant]
     Indication: COUGH
     Dosage: 1 TEAS Q 6HRS, PRN
     Route: 048
  20. LORTAB                             /00607101/ [Concomitant]
     Indication: PAIN
     Dosage: 1 DF, Q6 HOURS, PRN
     Route: 048
  21. KEFLEX                             /00145501/ [Concomitant]
     Indication: PRODUCT USED FOR UNKNOWN INDICATION
     Dosage: 500 MG, BID
     Route: 048
  22. MIRALAX                            /00754501/ [Concomitant]
     Indication: CONSTIPATION
     Dosage: 17 G, UID/QD
     Route: 048
  23. POTASSIUM CHLORIDE [Concomitant]
     Indication: SUPPLEMENTATION THERAPY
     Dosage: 1 DF, BID
     Route: 048
  24. COMPAZINE                          /00013302/ [Concomitant]
     Indication: NAUSEA
     Dosage: 1 DF, Q6 HOURS, PRN
     Route: 048

REACTIONS (17)
  - Failure to thrive [Recovering/Resolving]
  - Pleural effusion [Not Recovered/Not Resolved]
  - Pleural effusion [Not Recovered/Not Resolved]
  - Medical device complication [Not Recovered/Not Resolved]
  - Atelectasis [Not Recovered/Not Resolved]
  - Urinary tract infection staphylococcal [Recovered/Resolved]
  - Fatigue [Recovering/Resolving]
  - Nausea [Recovered/Resolved]
  - Asthenia [Recovering/Resolving]
  - Deep vein thrombosis [Not Recovered/Not Resolved]
  - International normalised ratio increased [Recovering/Resolving]
  - Confusional state [Recovered/Resolved]
  - Haematocrit decreased [Not Recovered/Not Resolved]
  - Haemoglobin decreased [Not Recovered/Not Resolved]
  - Red blood cell count decreased [Not Recovered/Not Resolved]
  - Anaemia of chronic disease [Unknown]
  - Decreased appetite [Recovering/Resolving]
